FAERS Safety Report 10157446 (Version 1)
Quarter: 2014Q2

REPORT INFORMATION
  Report Type: Spontaneous
  Country: US (occurrence: US)
  Receive Date: 20140507
  Receipt Date: 20140507
  Transmission Date: 20141212
  Serious: Yes (Other)
  Sender: FDA-Public Use
  Company Number: US-BAYER-2014-066191

PATIENT
  Age: 30 Year
  Sex: Female

DRUGS (6)
  1. YAZ [Suspect]
     Dosage: UNK
     Dates: start: 2001, end: 2002
  2. YASMIN [Suspect]
     Dosage: UNK
     Dates: start: 2001, end: 2002
  3. OCELLA [Suspect]
     Dosage: UNK
     Dates: start: 2001, end: 2002
  4. BEYAZ [Suspect]
     Dosage: UNK
     Dates: start: 2001, end: 2002
  5. GIANVI [Suspect]
     Dosage: UNK
     Dates: start: 2001, end: 2002
  6. SAFYRAL [Suspect]
     Dosage: UNK
     Dates: start: 2001, end: 2002

REACTIONS (1)
  - Thrombosis [None]
